FAERS Safety Report 5955008-1 (Version None)
Quarter: 2008Q4

REPORT INFORMATION
  Report Type: 
  Country: None (occurrence: None)
  Receive Date: 20081031
  Receipt Date: 20080703
  Transmission Date: 20090506
  Serious: No
  Sender: FDA-Public Use
  Company Number: 2008PV036038

PATIENT
  Age: 63 Year
  Sex: Female

DRUGS (5)
  1. SYMLIN [Suspect]
     Indication: TYPE 2 DIABETES MELLITUS
     Dosage: 120 MCG; TID; SC, 78 MCG; TID; SC, 60 MCG; TID; SC
     Route: 058
     Dates: start: 20080628, end: 20080629
  2. SYMLIN [Suspect]
     Indication: TYPE 2 DIABETES MELLITUS
     Dosage: 120 MCG; TID; SC, 78 MCG; TID; SC, 60 MCG; TID; SC
     Route: 058
     Dates: start: 20080630, end: 20080701
  3. SYMLIN [Suspect]
     Indication: TYPE 2 DIABETES MELLITUS
     Dosage: 120 MCG; TID; SC, 78 MCG; TID; SC, 60 MCG; TID; SC
     Route: 058
     Dates: start: 20080702
  4. LANTUS [Concomitant]
  5. HUMULIN R [Concomitant]

REACTIONS (2)
  - BLOOD GLUCOSE INCREASED [None]
  - NAUSEA [None]
